FAERS Safety Report 7491586-1 (Version None)
Quarter: 2011Q1

REPORT INFORMATION
  Report Type: 
  Country: None (occurrence: None)
  Receive Date: 20110318
  Receipt Date: 20090925
  Transmission Date: 20110831
  Serious: Yes (Hospitalization)
  Sender: FDA-Public Use
  Company Number: 1-0909-31

PATIENT
  Age: 24 Month
  Sex: Male

DRUGS (11)
  1. POLYCOSE [Concomitant]
  2. VITAMIN ADDITIVE [Concomitant]
  3. PREDNISONE [Concomitant]
  4. PULMICORT [Concomitant]
  5. MULTI-VITAMINS [Concomitant]
  6. PRILOSEC [Concomitant]
  7. ATARAX [Concomitant]
  8. DERMA-SMOOTHE/FS [Suspect]
     Indication: ECZEMA
     Dosage: TOPICAL
     Route: 061
  9. SINGULAIR [Concomitant]
  10. ALBUTEROL SULFATE AUTOHALER [Concomitant]
  11. WEIGHT GAIN MEDICINE [Concomitant]

REACTIONS (2)
  - HYPERSENSITIVITY [None]
  - INTENTIONAL DRUG MISUSE [None]
